FAERS Safety Report 5409474-0 (Version None)
Quarter: 2007Q3

REPORT INFORMATION
  Report Type: 
  Country: None (occurrence: None)
  Receive Date: 20070807
  Receipt Date: 20070807
  Transmission Date: 20080115
  Serious: Yes (Other)
  Sender: FDA-Public Use
  Company Number: None

PATIENT
  Age: 36 Year
  Sex: Male
  Weight: 108.8633 kg

DRUGS (2)
  1. ZOLOFT [Suspect]
     Indication: ANXIETY
     Dosage: THREE TABLETS ONE TIME PER DAY PO
     Route: 048
     Dates: start: 20070501, end: 20070805
  2. ZOLOFT [Suspect]
     Indication: DEPRESSION
     Dosage: THREE TABLETS ONE TIME PER DAY PO
     Route: 048
     Dates: start: 20070501, end: 20070805

REACTIONS (5)
  - ABNORMAL BEHAVIOUR [None]
  - ABNORMAL SLEEP-RELATED EVENT [None]
  - AGGRESSION [None]
  - STRESS [None]
  - SUICIDAL IDEATION [None]
